FAERS Safety Report 8412395-2 (Version None)
Quarter: 2012Q2

REPORT INFORMATION
  Report Type: 
  Country: None (occurrence: None)
  Receive Date: 20120605
  Receipt Date: 20120523
  Transmission Date: 20120825
  Serious: Yes (Other)
  Sender: FDA-Public Use
  Company Number: US-ELI_LILLY_AND_COMPANY-US201202006244

PATIENT
  Sex: Female

DRUGS (7)
  1. ATENOLOL [Concomitant]
  2. TRAVATAN [Concomitant]
  3. CYMBALTA [Suspect]
     Indication: COMPLEX REGIONAL PAIN SYNDROME
     Dosage: 60 MG, UNKNOWN
     Dates: start: 20110801
  4. SYNTHROID [Concomitant]
  5. VICTOZA [Concomitant]
  6. CYMBALTA [Suspect]
     Dosage: UNK, UNKNOWN
     Dates: start: 20111214
  7. OXYCONTIN [Concomitant]
     Dosage: 20 MG, BID

REACTIONS (8)
  - SKIN EXFOLIATION [None]
  - URTICARIA [None]
  - OFF LABEL USE [None]
  - LIP OEDEMA [None]
  - DYSPHONIA [None]
  - ABDOMINAL PAIN UPPER [None]
  - DYSPNOEA [None]
  - APHTHOUS STOMATITIS [None]
